FAERS Safety Report 5406004-4 (Version None)
Quarter: 2007Q3

REPORT INFORMATION
  Report Type: 
  Country: None (occurrence: None)
  Receive Date: 20070802
  Receipt Date: 20070717
  Transmission Date: 20080115
  Serious: No
  Sender: FDA-Public Use
  Company Number: 2007-160536-NL

PATIENT
  Age: 16 Year
  Sex: Female

DRUGS (13)
  1. VECURONIUM BROMIDE [Suspect]
     Indication: INDUCTION OF ANAESTHESIA
     Dosage: 7 MG ONCE/1 MG ONCE/1 MG ONCE INTRAVENOUS (NOS)
     Route: 042
     Dates: start: 20060810, end: 20060810
  2. VECURONIUM BROMIDE [Suspect]
     Indication: INDUCTION OF ANAESTHESIA
     Dosage: 7 MG ONCE/1 MG ONCE/1 MG ONCE INTRAVENOUS (NOS)
     Route: 042
     Dates: start: 20060810, end: 20060810
  3. VECURONIUM BROMIDE [Suspect]
     Indication: INDUCTION OF ANAESTHESIA
     Dosage: 7 MG ONCE/1 MG ONCE/1 MG ONCE INTRAVENOUS (NOS)
     Route: 042
     Dates: start: 20060810, end: 20060810
  4. PROPOFOL [Suspect]
     Indication: INDUCTION AND MAINTENANCE OF ANAESTHESIA
     Dosage: 60 MG ONCE/81 MG ONCE INTRAVENOUS (NOS)
     Route: 042
     Dates: start: 20060810, end: 20060810
  5. PROPOFOL [Suspect]
     Indication: INDUCTION AND MAINTENANCE OF ANAESTHESIA
     Dosage: 60 MG ONCE/81 MG ONCE INTRAVENOUS (NOS)
     Route: 042
     Dates: start: 20060810, end: 20060810
  6. FENTANYL [Suspect]
     Indication: INDUCTION AND MAINTENANCE OF ANAESTHESIA
     Dosage: 50 UG ONCE INTRAVENOUS (NOS)
     Route: 042
     Dates: start: 20060810, end: 20060810
  7. FENTANYL [Suspect]
     Indication: INDUCTION AND MAINTENANCE OF ANAESTHESIA
     Dosage: 50 UG ONCE INTRAVENOUS (NOS)
     Route: 042
     Dates: start: 20060810, end: 20060810
  8. FENTANYL [Suspect]
     Indication: INDUCTION AND MAINTENANCE OF ANAESTHESIA
     Dosage: 50 UG ONCE INTRAVENOUS (NOS)
     Route: 042
     Dates: start: 20060810, end: 20060810
  9. ISOFLURANE [Suspect]
     Indication: MAINTENANCE OF ANAESTHESIA
     Dosage: 80 ML ONCE RESPIRATORY (INHALATION)
     Route: 055
     Dates: start: 20060810, end: 20060810
  10. LIDOCAINE [Concomitant]
  11. NITROUS OXIDE [Concomitant]
  12. OXYGEN [Concomitant]
  13. ATROPINE [Concomitant]

REACTIONS (1)
  - HYPERKALAEMIA [None]
